FAERS Safety Report 21590507 (Version 2)
Quarter: 2022Q4

REPORT INFORMATION
  Report Type: Spontaneous
  Country: BR (occurrence: BR)
  Receive Date: 20221114
  Receipt Date: 20221125
  Transmission Date: 20230112
  Serious: No
  Sender: FDA-Public Use
  Company Number: BR-002147023-NVSC2022BR254574

PATIENT
  Age: 84 Year
  Sex: Male
  Weight: 70 kg

DRUGS (4)
  1. TABRECTA [Suspect]
     Active Substance: CAPMATINIB
     Indication: Lung neoplasm malignant
     Dosage: 2 DOSAGE FORM, Q12H (2 TABLETS DURING THE DAY AND 2 TABLETS AT NIGHT)
     Route: 048
     Dates: start: 202209
  2. ELIQUIS [Concomitant]
     Active Substance: APIXABAN
     Indication: Thrombosis prophylaxis
     Dosage: 2.5 DOSAGE FORM, QD (START DATE: MORE THAN 2 YEARS AGO)
     Route: 048
  3. AMIODARONE [Concomitant]
     Active Substance: AMIODARONE
     Indication: Arrhythmia
     Dosage: 1 DOSAGE FORM, QD (START DATE: MORE THAN 2 YEARS AGO)
     Route: 048
  4. LEVOTHYROXINE [Concomitant]
     Active Substance: LEVOTHYROXINE
     Indication: Thyroid disorder
     Dosage: 1 DOSAGE FORM, QD (START DATE: MORE THAN 2 YEARS AGO)
     Route: 048

REACTIONS (4)
  - Burning sensation [Not Recovered/Not Resolved]
  - Pain in extremity [Not Recovered/Not Resolved]
  - Taste disorder [Not Recovered/Not Resolved]
  - Decreased appetite [Not Recovered/Not Resolved]

NARRATIVE: CASE EVENT DATE: 20220901
